FAERS Safety Report 11512009 (Version 2)
Quarter: 2015Q3

REPORT INFORMATION
  Report Type: Report from Study
  Country: JP (occurrence: JP)
  Receive Date: 20150916
  Receipt Date: 20150928
  Transmission Date: 20151125
  Serious: Yes (Hospitalization, Other)
  Sender: FDA-Public Use
  Company Number: JP-BRISTOL-MYERS SQUIBB COMPANY-BMS-2015-028458

PATIENT
  Age: 85 Year
  Sex: Male
  Weight: 55 kg

DRUGS (6)
  1. EXCELASE [Concomitant]
     Active Substance: PANCRELIPASE
     Indication: PROPHYLAXIS
     Dosage: 1 DF, QD
     Route: 048
  2. PARIET [Concomitant]
     Active Substance: RABEPRAZOLE SODIUM
     Indication: PROPHYLAXIS
     Dosage: 10 MG, QD
     Route: 048
  3. GASMOTIN [Concomitant]
     Active Substance: MOSAPRIDE CITRATE
     Indication: PROPHYLAXIS
     Dosage: 15 MG, QD
     Route: 048
  4. APIXABAN [Suspect]
     Active Substance: APIXABAN
     Indication: CEREBROVASCULAR ACCIDENT PROPHYLAXIS
     Dosage: 2.5 MG, BID
     Route: 048
     Dates: start: 20140810
  5. MIRIPLATIN [Concomitant]
     Active Substance: MIRIPLATIN
     Indication: LUNG NEOPLASM MALIGNANT
     Dosage: UNK, QD
     Route: 048
     Dates: start: 20140908, end: 20140908
  6. AMLODIPINE [Concomitant]
     Active Substance: AMLODIPINE BESYLATE
     Indication: HYPERTENSION
     Dosage: 5 MG, QD
     Route: 048

REACTIONS (6)
  - Radiation oesophagitis [Recovered/Resolved]
  - Aspiration pleural cavity [Unknown]
  - Hepatocellular carcinoma [Recovering/Resolving]
  - Pleural effusion [Recovering/Resolving]
  - Platelet count decreased [Recovered/Resolved]
  - Lung neoplasm [Not Recovered/Not Resolved]

NARRATIVE: CASE EVENT DATE: 20140814
